FAERS Safety Report 4661427-6 (Version None)
Quarter: 2005Q2

REPORT INFORMATION
  Report Type: 
  Country: None (occurrence: None)
  Receive Date: 20050513
  Receipt Date: 20050509
  Transmission Date: 20051028
  Serious: Yes (Other)
  Sender: FDA-Public Use
  Company Number: CA-GLAXOSMITHKLINE-A0558042A

PATIENT
  Age: 45 Year
  Sex: Female

DRUGS (15)
  1. VALTREX [Suspect]
     Indication: DRUG USE FOR UNKNOWN INDICATION
     Dosage: 1000MG PER DAY
     Route: 048
  2. ATENOLOL [Concomitant]
     Route: 048
  3. CALCIUM ACETATE [Concomitant]
     Route: 048
  4. DIMENHYDRINATE [Concomitant]
  5. DOMPERIDONE [Concomitant]
     Route: 048
  6. EPOGEN [Concomitant]
     Route: 042
  7. GABAPENTIN [Concomitant]
  8. HYDROXYUREA [Concomitant]
     Route: 048
  9. INTERFERON [Concomitant]
  10. LOPERAMIDE HCL [Concomitant]
     Route: 048
  11. RANITIDINE [Concomitant]
  12. PAROXETINE [Concomitant]
  13. FELODIPINE [Concomitant]
     Route: 048
  14. SENNOSIDES [Concomitant]
     Route: 048
  15. TERAZOSIN [Concomitant]

REACTIONS (3)
  - CONFUSIONAL STATE [None]
  - DELIRIUM [None]
  - DEPRESSED LEVEL OF CONSCIOUSNESS [None]
